FAERS Safety Report 25796185 (Version 2)
Quarter: 2025Q3

REPORT INFORMATION
  Report Type: Report from Study
  Country: US (occurrence: US)
  Receive Date: 20250912
  Receipt Date: 20250919
  Transmission Date: 20251021
  Serious: Yes (Hospitalization, Other)
  Sender: ACADIA PHARMACEUTICALS
  Company Number: US-ACADIA PHARMACEUTICALS INC.-ACA-2025-PIM-010140

PATIENT
  Sex: Male

DRUGS (11)
  1. NUPLAZID [Suspect]
     Active Substance: PIMAVANSERIN TARTRATE
     Indication: Parkinson^s disease psychosis
     Dosage: 34 MILLIGRAM, QD
     Route: 048
     Dates: start: 20241015, end: 20250815
  2. SINEMET [Concomitant]
     Active Substance: CARBIDOPA\LEVODOPA
  3. CLONAZEPAM [Concomitant]
     Active Substance: CLONAZEPAM
  4. ARICEPT [Concomitant]
     Active Substance: DONEPEZIL HYDROCHLORIDE
  5. PROSCAR [Concomitant]
     Active Substance: FINASTERIDE
  6. NEURONTIN [Concomitant]
     Active Substance: GABAPENTIN
  7. COZAAR [Concomitant]
     Active Substance: LOSARTAN POTASSIUM
  8. METFORMIN [Concomitant]
     Active Substance: METFORMIN HYDROCHLORIDE
  9. PRILOSEC [Concomitant]
     Active Substance: OMEPRAZOLE MAGNESIUM
  10. CRESTOR [Concomitant]
     Active Substance: ROSUVASTATIN CALCIUM
  11. TRINTELLIX [Concomitant]
     Active Substance: VORTIOXETINE HYDROBROMIDE

REACTIONS (3)
  - Pneumonia aspiration [Unknown]
  - Respiratory failure [Unknown]
  - Fatigue [Unknown]
